FAERS Safety Report 8137316-1 (Version None)
Quarter: 2012Q1

REPORT INFORMATION
  Report Type: 
  Country: None (occurrence: None)
  Receive Date: 20120210
  Receipt Date: 20120203
  Transmission Date: 20120608
  Serious: Yes (Other)
  Sender: FDA-Public Use
  Company Number: AUR-APL-2012-00838

PATIENT
  Age: 76 Year
  Sex: Female

DRUGS (1)
  1. AMOXICILLIN [Suspect]
     Indication: BRONCHITIS
     Dosage: (2 GM,1 D), ORAL
     Route: 048
     Dates: start: 20111227, end: 20111228

REACTIONS (3)
  - DRUG HYPERSENSITIVITY [None]
  - VERTIGO [None]
  - HYPERHIDROSIS [None]
